FAERS Safety Report 6143808-7 (Version None)
Quarter: 2009Q2

REPORT INFORMATION
  Report Type: 
  Country: None (occurrence: None)
  Receive Date: 20090403
  Receipt Date: 20090401
  Transmission Date: 20091009
  Serious: Yes (Death, Hospitalization)
  Sender: FDA-Public Use
  Company Number: PHHY2009CN12246

PATIENT
  Age: 57 Year
  Sex: Female

DRUGS (8)
  1. TEGRETOL [Suspect]
     Indication: GLOSSODYNIA
     Dosage: UNK
  2. ORYZANOL [Concomitant]
     Indication: GLOSSODYNIA
  3. MULTI-VITAMINS [Concomitant]
     Indication: GLOSSODYNIA
  4. VITAMIN E [Concomitant]
     Indication: GLOSSODYNIA
  5. BI BAI KE [Concomitant]
     Indication: GLOSSODYNIA
  6. SODIUM BICARBONATE [Concomitant]
     Indication: GLOSSODYNIA
  7. COMPOUND CHAMOMILE AND LIDOCAINE HYDROCHLORIDE [Concomitant]
     Indication: GLOSSODYNIA
  8. ROXITHROMYCIN [Concomitant]
     Dosage: UNK
     Dates: start: 20090302, end: 20090313

REACTIONS (2)
  - DEATH [None]
  - RASH [None]
